FAERS Safety Report 8167162-4 (Version None)
Quarter: 2012Q1

REPORT INFORMATION
  Report Type: 
  Country: None (occurrence: None)
  Receive Date: 20120227
  Receipt Date: 20120222
  Transmission Date: 20120608
  Serious: Yes (Other)
  Sender: FDA-Public Use
  Company Number: US-JNJFOC-20120103833

PATIENT
  Sex: Female
  Weight: 76.2 kg

DRUGS (15)
  1. ELMIRON [Suspect]
     Route: 048
  2. PROTONIX [Suspect]
     Route: 065
     Dates: end: 20111223
  3. VALIUM [Concomitant]
     Indication: ANXIETY
     Dosage: AT 10 PM NIGHT
     Route: 048
     Dates: start: 20090101
  4. VALIUM [Concomitant]
     Dosage: IN NOON
     Route: 048
     Dates: start: 20090101
  5. RISPERDAL [Suspect]
     Indication: ANXIETY
     Dosage: 1/2 OF 0.25MG TABLET
     Route: 048
     Dates: end: 20120101
  6. ELMIRON [Suspect]
     Dosage: 2 100MG CAPSULES IN THE NIGHT
     Route: 048
     Dates: start: 20110101
  7. PROTONIX [Suspect]
     Indication: GASTRIC DISORDER
     Route: 065
  8. ELMIRON [Suspect]
     Route: 048
     Dates: start: 20110101, end: 20110101
  9. ELMIRON [Suspect]
     Indication: CYSTITIS INTERSTITIAL
     Dosage: 100MG CAPSULE IN THE MORNING
     Route: 048
     Dates: start: 20110101
  10. RISPERDAL [Suspect]
     Dosage: 1/4 OF 0.25MG TABLET
     Route: 048
  11. ATENOLOL [Concomitant]
     Indication: CARDIAC DISORDER
     Route: 048
  12. VALIUM [Concomitant]
     Dosage: IN MORNING AT 9 AM
     Route: 048
  13. RISPERDAL [Suspect]
     Route: 048
     Dates: start: 20110101
  14. PROTONIX [Suspect]
     Indication: GASTROOESOPHAGEAL REFLUX DISEASE
     Route: 065
  15. PROTONIX [Suspect]
     Route: 065
     Dates: end: 20111223

REACTIONS (7)
  - DYSPHONIA [None]
  - TINNITUS [None]
  - INCORRECT DOSE ADMINISTERED [None]
  - GASTROOESOPHAGEAL REFLUX DISEASE [None]
  - ORAL PAIN [None]
  - DYSGEUSIA [None]
  - DRY MOUTH [None]
